FAERS Safety Report 17795470 (Version 1)
Quarter: 2020Q2

REPORT INFORMATION
  Report Type: Spontaneous
  Country: US (occurrence: US)
  Receive Date: 20200515
  Receipt Date: 20200515
  Transmission Date: 20200714
  Serious: No
  Sender: FDA-Public Use
  Company Number: US-ASTRAZENECA-2020SE17304

PATIENT
  Age: 10 Month
  Sex: Female
  Weight: 8.2 kg

DRUGS (2)
  1. SYNAGIS [Suspect]
     Active Substance: PALIVIZUMAB
     Indication: ANTIVIRAL PROPHYLAXIS
     Dosage: 1.2 ML OF SYNAGIS
     Route: 030
     Dates: start: 20200130, end: 20200130
  2. SYNAGIS [Suspect]
     Active Substance: PALIVIZUMAB
     Indication: ANTIVIRAL PROPHYLAXIS
     Dosage: 1.2 ML OF SYNAGIS
     Route: 030

REACTIONS (1)
  - Pyrexia [Unknown]
